FAERS Safety Report 6100277 (Version 16)
Quarter: 2013Q4

REPORT INFORMATION
  Report Type: Spontaneous
  Country: US (occurrence: US)
  Receive Date: 20060807
  Receipt Date: 20131120
  Transmission Date: 20140711
  Serious: Yes (Other)
  Sender: FDA-Public Use
  Company Number: PHEH2006US09630

PATIENT
  Age: 46 Year
  Sex: Male
  Weight: 84 kg

DRUGS (17)
  1. ZOMETA [Suspect]
     Indication: OSTEOPOROSIS
     Dosage: 4 MG, QMO
     Route: 042
     Dates: start: 20040116, end: 20060922
  2. FOSAMAX [Suspect]
  3. OXYCONTIN [Concomitant]
  4. LORTAB [Concomitant]
  5. ALLEGRA [Concomitant]
  6. LEXAPRO [Concomitant]
  7. FAMOTIDINE [Concomitant]
  8. CLONAZEPAM [Concomitant]
  9. GASTROCROM [Concomitant]
  10. HYDROCODONE [Concomitant]
  11. MIRALAX [Concomitant]
  12. EPIPEN [Concomitant]
  13. BENADRYL ^PFIZER WARNER-LAMBERT^ [Concomitant]
  14. SENOKOT-S [Concomitant]
  15. KLONOPIN [Concomitant]
  16. VICODIN [Concomitant]
  17. PRILOSEC [Concomitant]

REACTIONS (48)
  - Intervertebral disc degeneration [Unknown]
  - Osteonecrosis of jaw [Unknown]
  - Pain in jaw [Unknown]
  - Injury [Unknown]
  - Pain [Unknown]
  - Tooth disorder [Unknown]
  - Haemorrhage [Unknown]
  - Swelling [Unknown]
  - Sensitivity of teeth [Unknown]
  - Bone disorder [Unknown]
  - Breath odour [Unknown]
  - Bone fragmentation [Unknown]
  - Gingival disorder [Unknown]
  - Infection [Unknown]
  - Tooth fracture [Unknown]
  - Burning sensation [Unknown]
  - Back pain [Unknown]
  - Kyphosis [Unknown]
  - Spinal osteoarthritis [Unknown]
  - Neck pain [Unknown]
  - Paraesthesia [Unknown]
  - Intervertebral disc protrusion [Unknown]
  - Duodenitis [Unknown]
  - Presbyoesophagus [Unknown]
  - Sinusitis [Unknown]
  - Sinus polyp [Unknown]
  - Pain in extremity [Unknown]
  - Amnesia [Unknown]
  - Anxiety [Unknown]
  - Fall [Unknown]
  - Gastrooesophageal reflux disease [Unknown]
  - Arthralgia [Unknown]
  - Erectile dysfunction [Unknown]
  - Osteoarthritis [Unknown]
  - Ingrowing nail [Unknown]
  - Dysuria [Unknown]
  - Malignant mast cell neoplasm [Unknown]
  - Hypogonadism [Unknown]
  - Disability [Unknown]
  - Gait disturbance [Unknown]
  - Dysstasia [Unknown]
  - Bone loss [Unknown]
  - Periodontal disease [Unknown]
  - Primary sequestrum [Unknown]
  - Dental caries [Unknown]
  - Folliculitis [Unknown]
  - Bronchitis [Unknown]
  - Hypersomnia [Unknown]
